FAERS Safety Report 10406227 (Version 4)
Quarter: 2015Q2

REPORT INFORMATION
  Report Type: Spontaneous
  Country: US (occurrence: US)
  Receive Date: 20140825
  Receipt Date: 20150515
  Transmission Date: 20150821
  Serious: Yes (Death, Hospitalization, Other)
  Sender: FDA-Public Use
  Company Number: US-009507513-1408USA013458

PATIENT
  Sex: Male
  Weight: 113.3 kg

DRUGS (2)
  1. JANUVIA [Suspect]
     Active Substance: SITAGLIPTIN PHOSPHATE
     Indication: TYPE 2 DIABETES MELLITUS
     Dosage: 100 MG, QD
     Route: 048
     Dates: start: 20090723, end: 201005
  2. VICTOZA [Suspect]
     Active Substance: LIRAGLUTIDE
     Indication: TYPE 2 DIABETES MELLITUS
     Dosage: 1.2 MG, QD
     Dates: start: 201002, end: 201104

REACTIONS (45)
  - Pancreatic carcinoma metastatic [Fatal]
  - Hypovolaemia [Unknown]
  - Splenomegaly [Unknown]
  - Musculoskeletal stiffness [Unknown]
  - Back pain [Unknown]
  - Bronchial hyperreactivity [Unknown]
  - Tachycardia [Unknown]
  - Rib fracture [Unknown]
  - Urinary hesitation [Unknown]
  - Deep vein thrombosis [Unknown]
  - Cellulitis [Recovered/Resolved]
  - Hypotension [Unknown]
  - Libido decreased [Unknown]
  - Tendonitis [Unknown]
  - Thrombocytopenia [Unknown]
  - Dysuria [Unknown]
  - Adrenal mass [Unknown]
  - Splenic vein thrombosis [Unknown]
  - Chronic obstructive pulmonary disease [Not Recovered/Not Resolved]
  - Drug hypersensitivity [Unknown]
  - Essential hypertension [Unknown]
  - Insomnia [Unknown]
  - Injection site bruising [Unknown]
  - Proteinuria [Not Recovered/Not Resolved]
  - Disseminated intravascular coagulation [Unknown]
  - Venous thrombosis [Unknown]
  - Wound [Unknown]
  - Hyponatraemia [Unknown]
  - Acute kidney injury [Unknown]
  - Microalbuminuria [Unknown]
  - Panniculitis [Recovered/Resolved]
  - Ascites [Unknown]
  - Acidosis [Unknown]
  - Steroid therapy [Not Recovered/Not Resolved]
  - Neuropathy peripheral [Unknown]
  - Asthma [Unknown]
  - Drug ineffective [Unknown]
  - Pulmonary embolism [Unknown]
  - Portal vein thrombosis [Unknown]
  - Hyperkalaemia [Unknown]
  - Ascites [Unknown]
  - Hypercholesterolaemia [Unknown]
  - Oedema peripheral [Unknown]
  - Gastrooesophageal reflux disease [Not Recovered/Not Resolved]
  - Upper respiratory tract infection [Unknown]

NARRATIVE: CASE EVENT DATE: 20090813
